APPROVED DRUG PRODUCT: TARKA
Active Ingredient: TRANDOLAPRIL; VERAPAMIL HYDROCHLORIDE
Strength: 1MG;240MG **Federal Register determination that product was not discontinued or withdrawn for safety or effectiveness reasons**
Dosage Form/Route: TABLET, EXTENDED RELEASE;ORAL
Application: N020591 | Product #003
Applicant: ABBVIE INC
Approved: Oct 22, 1996 | RLD: Yes | RS: No | Type: DISCN